FAERS Safety Report 12074465 (Version 1)
Quarter: 2016Q1

REPORT INFORMATION
  Report Type: Spontaneous
  Country: US (occurrence: US)
  Receive Date: 20160212
  Receipt Date: 20160212
  Transmission Date: 20160526
  Serious: Yes (Hospitalization)
  Sender: FDA-Public Use
  Company Number: US-TEVA-635016USA

PATIENT

DRUGS (2)
  1. ENOXAPARIN [Suspect]
     Active Substance: ENOXAPARIN
     Route: 065
  2. BRODIFACOUM [Suspect]
     Active Substance: BRODIFACOUM
     Route: 065

REACTIONS (4)
  - Haemorrhage [Recovered/Resolved]
  - Pulmonary embolism [Recovered/Resolved]
  - Coagulopathy [Recovering/Resolving]
  - Haematoma [Recovered/Resolved]
